FAERS Safety Report 12374478 (Version 2)
Quarter: 2016Q2

REPORT INFORMATION
  Report Type: Spontaneous
  Country: IQ (occurrence: IQ)
  Receive Date: 20160517
  Receipt Date: 20160518
  Transmission Date: 20160815
  Serious: Yes (Life-Threatening, Other)
  Sender: FDA-Public Use
  Company Number: IQ-ROCHE-1758858

PATIENT
  Sex: Male
  Weight: 95 kg

DRUGS (1)
  1. RITUXIMAB [Suspect]
     Active Substance: RITUXIMAB
     Indication: NEUROMYELITIS OPTICA SPECTRUM DISORDER
     Dosage: 1 Q/KG OVER 4 HOURS
     Route: 042
     Dates: start: 20160508, end: 20160508

REACTIONS (6)
  - Asthenia [Recovering/Resolving]
  - Off label use [Unknown]
  - Dysphoria [Recovering/Resolving]
  - Quadriparesis [Recovering/Resolving]
  - Interstitial lung disease [Unknown]
  - Dyspnoea [Recovering/Resolving]
